APPROVED DRUG PRODUCT: BACTERIOSTATIC WATER FOR INJECTION IN PLASTIC CONTAINER
Active Ingredient: STERILE WATER FOR INJECTION
Strength: 100%
Dosage Form/Route: LIQUID;N/A
Application: A089100 | Product #001
Applicant: ABRAXIS PHARMACEUTICAL PRODUCTS
Approved: Dec 29, 1987 | RLD: No | RS: No | Type: DISCN